FAERS Safety Report 12366264 (Version 3)
Quarter: 2016Q3

REPORT INFORMATION
  Report Type: Report from Study
  Country: US (occurrence: US)
  Receive Date: 20160513
  Receipt Date: 20160825
  Transmission Date: 20161109
  Serious: Yes (Hospitalization, Other)
  Sender: FDA-Public Use
  Company Number: US-ACTELION-A-NJ2016-134162

PATIENT
  Age: 69 Year
  Sex: Female

DRUGS (2)
  1. TRACLEER [Suspect]
     Active Substance: BOSENTAN
     Indication: PULMONARY ARTERIAL HYPERTENSION
     Dosage: 125 MG, BID
     Route: 048
     Dates: start: 20060308
  2. COUMADIN [Concomitant]
     Active Substance: WARFARIN SODIUM

REACTIONS (12)
  - Blood potassium decreased [Unknown]
  - Thyroid cancer [Unknown]
  - Malnutrition [Unknown]
  - Fall [Unknown]
  - Decreased appetite [Unknown]
  - Dehydration [Unknown]
  - Atrial fibrillation [Unknown]
  - Contusion [Unknown]
  - Blood glucose decreased [Unknown]
  - Blood pressure fluctuation [Unknown]
  - Full blood count abnormal [Unknown]
  - Sleep paralysis [Unknown]
